FAERS Safety Report 20410872 (Version 1)
Quarter: 2022Q1

REPORT INFORMATION
  Report Type: Spontaneous
  Country: FI (occurrence: FI)
  Receive Date: 20220201
  Receipt Date: 20220201
  Transmission Date: 20220424
  Serious: Yes (Other)
  Sender: FDA-Public Use
  Company Number: FI-NAPPMUNDI-GBR-2021-0090682

PATIENT
  Age: 54 Year
  Sex: Male

DRUGS (8)
  1. NORSPAN [Suspect]
     Active Substance: BUPRENORPHINE
     Indication: Pain management
     Dosage: 30 MCG, UNK
     Route: 062
  2. NORSPAN [Suspect]
     Active Substance: BUPRENORPHINE
     Dosage: 30 MCG, Q1H (STRENGTH 30MG)
     Route: 062
  3. NORSPAN [Suspect]
     Active Substance: BUPRENORPHINE
     Dosage: 30 MCG, Q1H (STRENGTH 30MG)
     Route: 062
  4. NORSPAN [Suspect]
     Active Substance: BUPRENORPHINE
     Dosage: 30 MCG, Q1H (STRENGTH 30MG)
     Route: 062
  5. NORSPAN [Suspect]
     Active Substance: BUPRENORPHINE
     Dosage: 30 MCG, Q1H (STRENGTH 30MG)
     Route: 062
  6. NORSPAN [Suspect]
     Active Substance: BUPRENORPHINE
     Dosage: 30 MCG, Q1H (STRENGTH 30MG)
     Route: 062
  7. PREGABALIN [Concomitant]
     Active Substance: PREGABALIN
     Indication: Product used for unknown indication
     Dosage: 75 MG, 5/DAY
     Route: 065
  8. IBUPROFEN [Concomitant]
     Active Substance: IBUPROFEN
     Indication: Product used for unknown indication
     Dosage: 800 MG, UNK (OCCASIONALLY)
     Route: 065

REACTIONS (7)
  - Arrhythmia [Not Recovered/Not Resolved]
  - Product adhesion issue [Unknown]
  - Intentional product misuse [Unknown]
  - Chills [Not Recovered/Not Resolved]
  - Blister [Recovered/Resolved]
  - Hyperhidrosis [Not Recovered/Not Resolved]
  - Influenza like illness [Not Recovered/Not Resolved]
